FAERS Safety Report 7233717-4 (Version None)
Quarter: 2011Q1

REPORT INFORMATION
  Report Type: 
  Country: None (occurrence: None)
  Receive Date: 20110119
  Receipt Date: 20100414
  Transmission Date: 20110831
  Serious: No
  Sender: FDA-Public Use
  Company Number: US-TEVA-231395USA

PATIENT
  Age: 51 Year
  Sex: Female

DRUGS (1)
  1. COPAXONE [Suspect]
     Indication: MULTIPLE SCLEROSIS
     Route: 058

REACTIONS (4)
  - DRUG HYPERSENSITIVITY [None]
  - INTESTINAL FUNCTIONAL DISORDER [None]
  - WEIGHT INCREASED [None]
  - GASTROINTESTINAL DISORDER [None]
